FAERS Safety Report 16022375 (Version 1)
Quarter: 2019Q1

REPORT INFORMATION
  Report Type: Spontaneous
  Country: GR (occurrence: GR)
  Receive Date: 20190301
  Receipt Date: 20190301
  Transmission Date: 20190418
  Serious: Yes (Hospitalization)
  Sender: FDA-Public Use
  Company Number: GR-ASTRAZENECA-2019SE31734

PATIENT
  Age: 77 Year
  Sex: Female

DRUGS (4)
  1. BUDESONIDE. [Suspect]
     Active Substance: BUDESONIDE
     Indication: INFLUENZA
     Route: 055
     Dates: start: 20190109
  2. DEMOREN [Suspect]
     Active Substance: ALBUTEROL SULFATE\IPRATROPIUM BROMIDE
     Indication: INFLUENZA
     Route: 055
     Dates: start: 20190109
  3. PENICILLIN NOS [Suspect]
     Active Substance: PENICILLIN
     Indication: INFLUENZA
     Dosage: 500.0MG UNKNOWN
     Route: 065
     Dates: start: 20190109
  4. IPRATROPIUM BROMIDE. [Suspect]
     Active Substance: IPRATROPIUM BROMIDE
     Indication: INFLUENZA
     Route: 055
     Dates: start: 20190109

REACTIONS (2)
  - Drug ineffective [Recovering/Resolving]
  - Oral candidiasis [Not Recovered/Not Resolved]

NARRATIVE: CASE EVENT DATE: 20190112
